FAERS Safety Report 4524207-8 (Version None)
Quarter: 2004Q4

REPORT INFORMATION
  Report Type: 
  Country: None (occurrence: None)
  Receive Date: 20041209
  Receipt Date: 20041125
  Transmission Date: 20050328
  Serious: No
  Sender: FDA-Public Use
  Company Number: 2004AC00863

PATIENT
  Age: 66 Year
  Sex: Female
  Weight: 63 kg

DRUGS (6)
  1. CRESTOR [Suspect]
     Dosage: 20 MG PO
     Route: 048
     Dates: start: 20041022, end: 20041105
  2. CELLCEPT [Concomitant]
  3. PREDNISOLONE [Concomitant]
  4. APROVEL [Concomitant]
  5. ELTHYRONE [Concomitant]
  6. PLENDIL [Concomitant]

REACTIONS (1)
  - NEPHROPATHY TOXIC [None]
